FAERS Safety Report 16674258 (Version 1)
Quarter: 2019Q3

REPORT INFORMATION
  Report Type: Report from Study
  Country: US (occurrence: US)
  Receive Date: 20190806
  Receipt Date: 20190806
  Transmission Date: 20191004
  Serious: Yes (Other)
  Sender: FDA-Public Use
  Company Number: US-ELI_LILLY_AND_COMPANY-US201908001302

PATIENT
  Sex: Female

DRUGS (1)
  1. TERIPARATIDE [Suspect]
     Active Substance: TERIPARATIDE
     Indication: PRODUCT USED FOR UNKNOWN INDICATION
     Dosage: UNK, UNKNOWN
     Route: 065
     Dates: start: 20181015

REACTIONS (6)
  - Back pain [Unknown]
  - Arthralgia [Unknown]
  - Migraine [Unknown]
  - Muscular weakness [Unknown]
  - Cardiovascular disorder [Not Recovered/Not Resolved]
  - Musculoskeletal discomfort [Unknown]
